FAERS Safety Report 21493734 (Version 1)
Quarter: 2022Q4

REPORT INFORMATION
  Report Type: Spontaneous
  Country: US (occurrence: US)
  Receive Date: 20221021
  Receipt Date: 20221021
  Transmission Date: 20230113
  Serious: Yes (Death, Life-Threatening, Hospitalization, Other)
  Sender: FDA-Public Use
  Company Number: US-LUPIN PHARMACEUTICALS INC.-2022-12122

PATIENT
  Age: 64 Year
  Sex: Female

DRUGS (13)
  1. LOSARTAN POTASSIUM [Suspect]
     Active Substance: LOSARTAN POTASSIUM
     Indication: Product used for unknown indication
     Dosage: 100 MILLIGRAM
     Route: 065
  2. CARVEDILOL [Suspect]
     Active Substance: CARVEDILOL
     Indication: Product used for unknown indication
     Dosage: 25 MILLIGRAM
     Route: 065
  3. CALCIUM [Suspect]
     Active Substance: CALCIUM
     Indication: Intentional overdose
     Dosage: UNK
     Route: 065
  4. NIFEDIPINE [Suspect]
     Active Substance: NIFEDIPINE
     Indication: Product used for unknown indication
     Dosage: 90 MILLIGRAM
     Route: 065
  5. NOREPINEPHRINE [Suspect]
     Active Substance: NOREPINEPHRINE
     Indication: Intentional overdose
     Dosage: UNK
     Route: 065
  6. PHENYLEPHRINE [Suspect]
     Active Substance: PHENYLEPHRINE HYDROCHLORIDE
     Indication: Intentional overdose
     Dosage: UNK
     Route: 065
  7. VASOPRESSIN [Suspect]
     Active Substance: VASOPRESSIN
     Indication: Intentional overdose
     Dosage: UNK
     Route: 065
  8. DOPAMINE [Suspect]
     Active Substance: DOPAMINE HYDROCHLORIDE
     Indication: Intentional overdose
     Dosage: UNK
     Route: 065
  9. EPINEPHRINE [Suspect]
     Active Substance: EPINEPHRINE
     Indication: Intentional overdose
     Dosage: UNK
     Route: 065
  10. ACTIVATED CHARCOAL [Suspect]
     Active Substance: ACTIVATED CHARCOAL
     Indication: Intentional overdose
     Dosage: UNK
     Route: 065
  11. INSULIN NOS [Suspect]
     Active Substance: INSULIN NOS
     Indication: Intentional overdose
     Dosage: UNK UNK, QD (1 INTERNATIONAL UNIT PER KILOGRAM)
     Route: 042
  12. INSULIN NOS [Suspect]
     Active Substance: INSULIN NOS
     Dosage: UNK UNK, QD (11 INTERNATIONAL UNIT PER KILOGRAM)
     Route: 042
  13. DEXTROSE [Suspect]
     Active Substance: DEXTROSE
     Indication: Intentional overdose
     Dosage: UNK
     Route: 065

REACTIONS (4)
  - Intentional overdose [Fatal]
  - Suicide attempt [Fatal]
  - Shock [Unknown]
  - Drug ineffective [Fatal]
